FAERS Safety Report 5411438-8 (Version None)
Quarter: 2007Q3

REPORT INFORMATION
  Report Type: 
  Country: None (occurrence: None)
  Receive Date: 20070810
  Receipt Date: 20070727
  Transmission Date: 20080115
  Serious: Yes (Hospitalization)
  Sender: FDA-Public Use
  Company Number: AU-GENENTECH-220903

PATIENT
  Sex: Female
  Weight: 47.482 kg

DRUGS (6)
  1. BEVACIZUMAB [Suspect]
     Indication: COLON CANCER
     Dosage: 367 MG, Q3W
     Route: 042
     Dates: start: 20051026
  2. CAPECITABINE [Suspect]
     Indication: COLON CANCER
     Dosage: 1.5 G, BID
     Route: 048
     Dates: start: 20051026
  3. OXALIPLATIN [Suspect]
     Indication: COLON CANCER
     Dosage: 185 MG, Q3W
     Route: 042
     Dates: start: 20051026
  4. TELMISARTAN [Concomitant]
     Indication: DRUG USE FOR UNKNOWN INDICATION
     Dates: start: 20050515
  5. LERCANIDIPINE [Concomitant]
     Indication: DRUG USE FOR UNKNOWN INDICATION
     Dates: start: 20050515
  6. METOCLOPRAMIDE [Concomitant]
     Indication: DRUG USE FOR UNKNOWN INDICATION

REACTIONS (2)
  - DIARRHOEA [None]
  - ENTERITIS [None]
